FAERS Safety Report 4405172-0 (Version None)
Quarter: 2004Q3

REPORT INFORMATION
  Report Type: 
  Country: None (occurrence: None)
  Receive Date: 20040722
  Receipt Date: 20040722
  Transmission Date: 20050211
  Serious: Yes (Death)
  Sender: FDA-Public Use
  Company Number: None

PATIENT
  Sex: Male

DRUGS (1)
  1. POSICOR [Suspect]
     Dates: start: 19980615

REACTIONS (4)
  - MUSCLE DISORDER [None]
  - MUSCLE INJURY [None]
  - RENAL DISORDER [None]
  - RENAL INJURY [None]
